FAERS Safety Report 13270469 (Version 4)
Quarter: 2017Q4

REPORT INFORMATION
  Report Type: Spontaneous
  Country: US (occurrence: US)
  Receive Date: 20170224
  Receipt Date: 20171005
  Transmission Date: 20180320
  Serious: Yes (Other)
  Sender: FDA-Public Use
  Company Number: US-SA-2017SA031295

PATIENT
  Age: 75 Year
  Sex: Female
  Weight: 83.91 kg

DRUGS (27)
  1. ALIROCUMAB PREFILLED PEN [Suspect]
     Active Substance: ALIROCUMAB
     Indication: BLOOD CHOLESTEROL INCREASED
     Dates: start: 20161120
  2. HYDROCHLOROTHIAZIDE. [Concomitant]
     Active Substance: HYDROCHLOROTHIAZIDE
     Dosage: STRENGTH: 12.5MG
     Route: 048
  3. ASPIR-81 [Concomitant]
     Active Substance: ASPIRIN
     Dosage: ENTERIC COATED; STRENGTH: 81MG
     Route: 048
  4. CALCIUM [Concomitant]
     Active Substance: CALCIUM
     Dosage: CALCIUM 500MG; CALCIUM (1250MG)
     Route: 048
  5. QVAR [Concomitant]
     Active Substance: BECLOMETHASONE DIPROPIONATE
     Dosage: ORAL INHALER
  6. NITROSTAT [Concomitant]
     Active Substance: NITROGLYCERIN
     Indication: CHEST PAIN
     Dosage: STRENGTH: 0.4MG
     Route: 060
  7. CARAFATE [Concomitant]
     Active Substance: SUCRALFATE
     Dosage: 100 MG/ML
     Route: 048
  8. FLONASE [Concomitant]
     Active Substance: FLUTICASONE PROPIONATE
     Route: 045
  9. MAGNESIUM [Concomitant]
     Active Substance: MAGNESIUM
     Dosage: 250MG
     Route: 048
  10. PRALUENT [Suspect]
     Active Substance: ALIROCUMAB
     Indication: BLOOD CHOLESTEROL INCREASED
     Route: 065
     Dates: start: 20161120
  11. COMBIVENT RESPIMAT [Concomitant]
     Active Substance: ALBUTEROL SULFATE\IPRATROPIUM BROMIDE
     Route: 055
  12. PROTONIX [Concomitant]
     Active Substance: PANTOPRAZOLE SODIUM
     Dosage: STRENGTH: 40MG
     Route: 048
  13. LASIX [Concomitant]
     Active Substance: FUROSEMIDE
     Dosage: EVERY MORNING AS NEEDED; STRENGTH: 20MG
     Route: 048
  14. PRALUENT [Suspect]
     Active Substance: ALIROCUMAB
     Indication: BLOOD CHOLESTEROL INCREASED
     Dosage: ROUTE: UNDER THE SKIN
     Dates: start: 2017, end: 201704
  15. FLOVENT HFA [Concomitant]
     Active Substance: FLUTICASONE PROPIONATE
     Route: 055
  16. RANEXA [Concomitant]
     Active Substance: RANOLAZINE
     Dosage: STRENGTH: 500MG
     Route: 065
  17. BACLOFEN. [Concomitant]
     Active Substance: BACLOFEN
     Dosage: STRENGTH: 10MG
     Route: 048
  18. BIOTIN [Concomitant]
     Active Substance: BIOTIN
     Dosage: STRENGTH: 1000MCG
     Route: 048
  19. SENNA-S [Concomitant]
     Active Substance: DOCUSATE SODIUM\SENNOSIDES
     Dosage: 8.6 MG-50 MG TABLET , TAKE 4 TABLET ORALLY EVERY EVENING
     Route: 048
  20. SINGULAIR [Concomitant]
     Active Substance: MONTELUKAST SODIUM
     Dosage: STRENGTH: 10MG
     Route: 048
  21. XANAX [Concomitant]
     Active Substance: ALPRAZOLAM
     Dosage: STRENGTH: 0.25MG
     Route: 048
  22. ALIROCUMAB PREFILLED PEN [Suspect]
     Active Substance: ALIROCUMAB
     Indication: BLOOD CHOLESTEROL INCREASED
     Dates: start: 201701, end: 201702
  23. VITAMIN D3 [Concomitant]
     Active Substance: CHOLECALCIFEROL
     Dosage: 1000 UNIT
     Route: 048
  24. PLAVIX [Concomitant]
     Active Substance: CLOPIDOGREL BISULFATE
     Dosage: STRENGTH: 75MG
     Route: 048
  25. PRALUENT [Suspect]
     Active Substance: ALIROCUMAB
     Indication: BLOOD CHOLESTEROL INCREASED
     Route: 065
     Dates: start: 201701, end: 201702
  26. ALLOPURINOL. [Concomitant]
     Active Substance: ALLOPURINOL
     Dosage: STRENGTH: 300MG
     Route: 048
  27. ALIROCUMAB PREFILLED PEN [Suspect]
     Active Substance: ALIROCUMAB
     Indication: BLOOD CHOLESTEROL INCREASED
     Dates: start: 2017, end: 201704

REACTIONS (12)
  - Oral pain [Not Recovered/Not Resolved]
  - Sinusitis [Not Recovered/Not Resolved]
  - Bronchitis [Not Recovered/Not Resolved]
  - Erythema [Recovered/Resolved]
  - Systemic lupus erythematosus [Not Recovered/Not Resolved]
  - Condition aggravated [Not Recovered/Not Resolved]
  - Oral discomfort [Recovered/Resolved]
  - Mouth swelling [Recovered/Resolved]
  - Pain [Recovered/Resolved]
  - Respiratory tract oedema [Not Recovered/Not Resolved]
  - Throat irritation [Recovered/Resolved]
  - Pharyngeal oedema [Recovered/Resolved]

NARRATIVE: CASE EVENT DATE: 201701
